FAERS Safety Report 4751010-6 (Version None)
Quarter: 2005Q3

REPORT INFORMATION
  Report Type: 
  Country: None (occurrence: None)
  Receive Date: 20050824
  Receipt Date: 20031218
  Transmission Date: 20060218
  Serious: Yes (Hospitalization)
  Sender: FDA-Public Use
  Company Number: CH-BOEHRINGER INGELHEIM PHARMACEUTICALS, INC.-2003-DE-06437SI

PATIENT
  Age: 58 Year
  Sex: Male

DRUGS (8)
  1. SPIRIVA [Suspect]
     Indication: CHRONIC OBSTRUCTIVE PULMONARY DISEASE
     Route: 055
     Dates: start: 20030801, end: 20031120
  2. SPIRIVA [Suspect]
     Route: 055
     Dates: start: 20030501, end: 20030701
  3. VENTOLIN [Concomitant]
     Indication: CHRONIC OBSTRUCTIVE PULMONARY DISEASE
     Dosage: REFER TO POSOLOGY
     Route: 055
  4. OXIS 12 [Concomitant]
     Indication: CHRONIC OBSTRUCTIVE PULMONARY DISEASE
     Dosage: REFER TO POSOLOGY
     Route: 055
  5. ZYBAN [Concomitant]
     Indication: TOBACCO ABUSE
     Dosage: REFER TO POSOLOGY
     Route: 048
  6. NICORETTE TTS [Concomitant]
     Indication: TOBACCO ABUSE
     Dosage: REFER TO POSOLOGY
     Route: 061
  7. NICORETTE [Concomitant]
     Indication: TOBACCO ABUSE
     Dosage: REFER TO POSOLOGY
     Route: 048
  8. TIATRAL 100 SR [Concomitant]
     Indication: EMBOLISM
     Route: 048

REACTIONS (3)
  - CHRONIC OBSTRUCTIVE PULMONARY DISEASE [None]
  - CUTANEOUS LUPUS ERYTHEMATOSUS [None]
  - LEUKOPENIA [None]
